FAERS Safety Report 7894383-8 (Version None)
Quarter: 2011Q4

REPORT INFORMATION
  Report Type: 
  Country: None (occurrence: None)
  Receive Date: 20111104
  Receipt Date: 20111026
  Transmission Date: 20120403
  Serious: Yes (Hospitalization)
  Sender: FDA-Public Use
  Company Number: FR-ASTRAZENECA-2011SE64975

PATIENT
  Age: 67 Year
  Sex: Male

DRUGS (4)
  1. REPAGLINIDE [Suspect]
     Indication: TYPE 2 DIABETES MELLITUS
     Route: 048
     Dates: start: 20110501, end: 20110921
  2. NEXIUM [Suspect]
     Route: 048
     Dates: start: 20110921
  3. DESLORATADINE [Suspect]
     Route: 048
     Dates: start: 20110501, end: 20110925
  4. NEXIUM [Suspect]
     Indication: RADIATION OESOPHAGITIS
     Route: 048
     Dates: start: 20110219, end: 20110918

REACTIONS (1)
  - HAEMOLYTIC ANAEMIA [None]
